FAERS Safety Report 6160217-5 (Version None)
Quarter: 2009Q2

REPORT INFORMATION
  Report Type: 
  Country: None (occurrence: None)
  Receive Date: 20090420
  Receipt Date: 20090414
  Transmission Date: 20091009
  Serious: Yes (Life-Threatening, Hospitalization)
  Sender: FDA-Public Use
  Company Number: B0564591A

PATIENT
  Sex: Male

DRUGS (5)
  1. RELENZA [Suspect]
     Indication: INFLUENZA
     Dosage: 10MG TWICE PER DAY
     Route: 055
     Dates: start: 20090305, end: 20090307
  2. BRUFEN [Suspect]
     Indication: DRUG USE FOR UNKNOWN INDICATION
     Route: 048
     Dates: start: 20090303, end: 20090304
  3. MEDICON [Concomitant]
     Route: 048
     Dates: start: 20090303
  4. MUCODYNE [Concomitant]
     Route: 048
     Dates: start: 20090303
  5. CALONAL [Concomitant]
     Route: 065
     Dates: start: 20090305

REACTIONS (8)
  - ABNORMAL BEHAVIOUR [None]
  - AGGRESSION [None]
  - HALLUCINATION [None]
  - HEADACHE [None]
  - HYPERKINESIA [None]
  - HYPERVIGILANCE [None]
  - RESTLESSNESS [None]
  - SOMNOLENCE [None]
